FAERS Safety Report 13501894 (Version 18)
Quarter: 2020Q4

REPORT INFORMATION
  Report Type: Report from Study
  Country: CN (occurrence: CN)
  Receive Date: 20170502
  Receipt Date: 20201208
  Transmission Date: 20210113
  Serious: Yes (Hospitalization)
  Sender: FDA-Public Use
  Company Number: CN-ROCHE-1923407

PATIENT
  Age: 65 Year
  Sex: Female
  Weight: 56 kg

DRUGS (83)
  1. PERTUZUMAB. [Suspect]
     Active Substance: PERTUZUMAB
     Dosage: MAINTENANCE DOSE.?DATE OF LAST DOSE OF BLINDED PERTUZUMAB MG ON 09/MAR/2017: 420MG
     Route: 042
     Dates: start: 20170216
  2. TRASTUZUMAB. [Suspect]
     Active Substance: TRASTUZUMAB
     Indication: BREAST CANCER METASTATIC
     Dosage: LOADING DOSE AS PER PROTOCOL.
     Route: 042
     Dates: start: 20170126
  3. PALONOSETRON HYDROCHLORIDE. [Concomitant]
     Active Substance: PALONOSETRON HYDROCHLORIDE
     Indication: PROPHYLAXIS OF NAUSEA AND VOMITING
     Dates: start: 20170126, end: 20170412
  4. VITAMIN B6 [Concomitant]
     Active Substance: PYRIDOXINE HYDROCHLORIDE
     Indication: PROPHYLAXIS OF NAUSEA AND VOMITING
     Dates: start: 20170126, end: 20170412
  5. METHOXYPHENAMINE [Concomitant]
     Active Substance: METHOXYPHENAMINE
     Indication: PNEUMONIA
     Dosage: COMPOUND METHOXYPHENAMINE CAPSULES
     Dates: start: 20170406, end: 20170416
  6. METHOXYPHENAMINE [Concomitant]
     Active Substance: METHOXYPHENAMINE
     Dates: start: 20180210, end: 20180216
  7. POTASSIUM CHLORIDE. [Concomitant]
     Active Substance: POTASSIUM CHLORIDE
     Dates: start: 20170422, end: 20170425
  8. QIANG LI PI PA LU [Concomitant]
     Indication: ASTHMA
  9. OMEPRAZOLE SODIUM [Concomitant]
     Active Substance: OMEPRAZOLE SODIUM
     Dates: start: 20170422, end: 20170425
  10. METHYLPREDNISOLONE SODIUM SUCCINATE. [Concomitant]
     Active Substance: METHYLPREDNISOLONE SODIUM SUCCINATE
     Dates: start: 20170610, end: 20170617
  11. ACETYLCYSTEINE. [Concomitant]
     Active Substance: ACETYLCYSTEINE
     Indication: COUGH
     Dates: start: 20170617, end: 20170710
  12. DESLORATADINE. [Concomitant]
     Active Substance: DESLORATADINE
     Indication: ECZEMA
     Dates: start: 20170715, end: 20170715
  13. PSEUDOEPHEDRINE HYDROCHLORIDE. [Concomitant]
     Active Substance: PSEUDOEPHEDRINE HYDROCHLORIDE
     Dates: start: 20170807, end: 20170810
  14. ROXITHROMYCIN [Concomitant]
     Active Substance: ROXITHROMYCIN
     Dates: start: 20170730, end: 20170812
  15. GLUCOSE [Concomitant]
     Active Substance: DEXTROSE
  16. HEPARIN SODIUM. [Concomitant]
     Active Substance: HEPARIN SODIUM
  17. PERTUZUMAB. [Suspect]
     Active Substance: PERTUZUMAB
     Indication: BREAST CANCER METASTATIC
     Dosage: LOADING DOSE AS PER PROTOCOL
     Route: 042
     Dates: start: 20170126
  18. INDOMETACIN [Concomitant]
     Active Substance: INDOMETHACIN
     Indication: PYREXIA
     Dates: start: 20170314, end: 20170317
  19. LATAMOXEF SODIUM [Concomitant]
     Dates: start: 20170330, end: 20170409
  20. METHOXYPHENAMINE [Concomitant]
     Active Substance: METHOXYPHENAMINE
     Indication: ASTHMA
     Dates: start: 20170427, end: 20170427
  21. LEVOFLOXACIN MESYLATE [Concomitant]
     Active Substance: LEVOFLOXACIN MESYLATE
     Dates: start: 20170420, end: 20170430
  22. LEVOFLOXACIN MESYLATE [Concomitant]
     Active Substance: LEVOFLOXACIN MESYLATE
     Dates: start: 20170503, end: 20170515
  23. SODIUM CHLORIDE. [Concomitant]
     Active Substance: SODIUM CHLORIDE
     Dosage: CONCENTRATED
     Dates: start: 20170418, end: 20170419
  24. POTASSIUM CHLORIDE. [Concomitant]
     Active Substance: POTASSIUM CHLORIDE
     Dates: start: 20170612, end: 20170617
  25. ROXITHROMYCIN [Concomitant]
     Active Substance: ROXITHROMYCIN
     Dates: start: 20170730, end: 20170812
  26. CHLORPHENAMINE MALEATE [Concomitant]
     Active Substance: CHLORPHENIRAMINE MALEATE
     Dates: start: 20171013, end: 20171013
  27. ZOLEDRONIC ACID [Concomitant]
     Active Substance: ZOLEDRONIC ACID
     Dates: start: 20171012
  28. COMPOUND SODIUM CHLORIDE [Concomitant]
     Dates: start: 20170418, end: 20170422
  29. POTASSIUM CHLORIDE. [Concomitant]
     Active Substance: POTASSIUM CHLORIDE
     Dates: start: 20170612, end: 20170617
  30. METHYLPREDNISOLONE SODIUM SUCCINATE. [Concomitant]
     Active Substance: METHYLPREDNISOLONE SODIUM SUCCINATE
     Dates: start: 20170513, end: 20170515
  31. GLYCYRRHIZIN [Concomitant]
     Active Substance: GLYCYRRHIZIN
     Dates: start: 20170612, end: 20170617
  32. AMLODIPINE BESYLATE. [Concomitant]
     Active Substance: AMLODIPINE BESYLATE
     Indication: HYPERTENSION
     Dates: start: 20170723, end: 20170807
  33. DEXTROMETHORPHAN HYDROBROMIDE. [Concomitant]
     Active Substance: DEXTROMETHORPHAN HYDROBROMIDE
     Dates: start: 20171013, end: 20171013
  34. PULMICORT TURBUHALER [Concomitant]
     Active Substance: BUDESONIDE
     Dates: start: 20170420, end: 20170422
  35. HOUTTUYNIA CORDATA [Concomitant]
     Active Substance: HERBALS\HOUTTUYNIA CORDATA WHOLE
     Indication: PHARYNGITIS
     Dates: start: 20181101, end: 20181103
  36. DEXAMETHASONE. [Concomitant]
     Active Substance: DEXAMETHASONE
     Dates: start: 20170125, end: 20170413
  37. DEXAMETHASONE SODIUM PHOSPHATE. [Concomitant]
     Active Substance: DEXAMETHASONE SODIUM PHOSPHATE
     Dates: start: 20170126, end: 20170412
  38. INDOMETACIN [Concomitant]
     Active Substance: INDOMETHACIN
     Dates: start: 20170419, end: 20170419
  39. INDOMETACIN [Concomitant]
     Active Substance: INDOMETHACIN
     Dates: start: 20170417, end: 20170417
  40. QIANG LI PI PA LU [Concomitant]
     Indication: COUGH
     Dates: start: 20170419, end: 20170419
  41. PULMICORT TURBUHALER [Concomitant]
     Active Substance: BUDESONIDE
     Indication: COUGH
     Route: 055
     Dates: start: 20170420, end: 20170422
  42. SODIUM CHLORIDE. [Concomitant]
     Active Substance: SODIUM CHLORIDE
     Dosage: CONCENTRATED
     Dates: start: 20170422, end: 20170425
  43. METHYLPREDNISOLONE SODIUM SUCCINATE. [Concomitant]
     Active Substance: METHYLPREDNISOLONE SODIUM SUCCINATE
     Dates: start: 20170610, end: 20170617
  44. ACETYLCYSTEINE. [Concomitant]
     Active Substance: ACETYLCYSTEINE
     Indication: ASTHMA
     Dates: start: 20170610, end: 20170617
  45. SALBUTAMOL SULFATE [Concomitant]
     Active Substance: ALBUTEROL SULFATE
     Indication: COUGH
     Dates: start: 20170610, end: 20170617
  46. PSEUDOEPHEDRINE HYDROCHLORIDE. [Concomitant]
     Active Substance: PSEUDOEPHEDRINE HYDROCHLORIDE
     Indication: NASOPHARYNGITIS
     Dates: start: 20180112, end: 20180117
  47. DEXTROMETHORPHAN HYDROBROMIDE. [Concomitant]
     Active Substance: DEXTROMETHORPHAN HYDROBROMIDE
     Indication: NASOPHARYNGITIS
     Dates: start: 20180112, end: 20180117
  48. PROMETHAZINE [Concomitant]
     Active Substance: PROMETHAZINE HYDROCHLORIDE
     Dates: start: 20170126, end: 20170412
  49. METHOXYPHENAMINE [Concomitant]
     Active Substance: METHOXYPHENAMINE
     Indication: COUGH
     Dates: start: 20170419, end: 20170419
  50. METHOXYPHENAMINE [Concomitant]
     Active Substance: METHOXYPHENAMINE
     Dates: start: 20170610, end: 20170705
  51. METHYLPREDNISOLONE SODIUM SUCCINATE. [Concomitant]
     Active Substance: METHYLPREDNISOLONE SODIUM SUCCINATE
     Indication: COUGH
     Dates: start: 20170509, end: 20170515
  52. METHYLPREDNISOLONE SODIUM SUCCINATE. [Concomitant]
     Active Substance: METHYLPREDNISOLONE SODIUM SUCCINATE
     Dates: start: 20170617, end: 20170627
  53. ROXITHROMYCIN [Concomitant]
     Active Substance: ROXITHROMYCIN
     Dates: start: 20180112, end: 20180120
  54. FILGRASTIM [Concomitant]
     Active Substance: FILGRASTIM
  55. METHOXYPHENAMINE [Concomitant]
     Active Substance: METHOXYPHENAMINE
     Dates: start: 20170812, end: 20170901
  56. CEFRADINE [Concomitant]
     Active Substance: CEPHRADINE
     Dates: start: 20170410, end: 20170416
  57. PULMICORT TURBUHALER [Concomitant]
     Active Substance: BUDESONIDE
     Indication: ASTHMA
     Route: 055
     Dates: start: 20170610, end: 20170617
  58. IRBESARTAN. [Concomitant]
     Active Substance: IRBESARTAN
     Indication: HYPERTENSION
     Dates: start: 20170723
  59. CHLORPHENAMINE MALEATE [Concomitant]
     Active Substance: CHLORPHENIRAMINE MALEATE
     Dates: start: 20170807, end: 20170810
  60. PARACETAMOL [Concomitant]
     Active Substance: ACETAMINOPHEN
     Indication: NASOPHARYNGITIS
     Dates: start: 20180112, end: 20180117
  61. CHLORPHENAMINE MALEATE [Concomitant]
     Active Substance: CHLORPHENIRAMINE MALEATE
     Indication: NASOPHARYNGITIS
     Dates: start: 20180112, end: 20180117
  62. GATIFLOXACIN. [Concomitant]
     Active Substance: GATIFLOXACIN
     Indication: PHARYNGITIS
     Dates: start: 20181101, end: 20181104
  63. PEGFILGRASTIM [Concomitant]
     Active Substance: PEGFILGRASTIM
  64. CIMETIDINE [Concomitant]
     Active Substance: CIMETIDINE
     Dates: start: 20170126, end: 20170412
  65. METOCLOPRAMIDE DIHYDROCHLORIDE [Concomitant]
     Indication: VOMITING
     Dates: start: 20170422, end: 20170425
  66. RANITIDINE HYDROCHLORIDE. [Concomitant]
     Active Substance: RANITIDINE HYDROCHLORIDE
     Dates: start: 20170610, end: 20170701
  67. AZITHROMYCIN ANHYDROUS. [Concomitant]
     Active Substance: AZITHROMYCIN ANHYDROUS
     Dates: start: 20170610, end: 20170612
  68. SALBUTAMOL SULFATE [Concomitant]
     Active Substance: ALBUTEROL SULFATE
     Indication: ASTHMA
  69. MOMETASONE FUROATE. [Concomitant]
     Active Substance: MOMETASONE FUROATE
     Indication: ECZEMA
     Dates: start: 20170715, end: 20170716
  70. METOPROLOL TARTRATE. [Concomitant]
     Active Substance: METOPROLOL TARTRATE
     Indication: HYPERTENSION
     Dates: start: 20170721, end: 20170807
  71. PARACETAMOL [Concomitant]
     Active Substance: ACETAMINOPHEN
     Dates: start: 20170807, end: 20170810
  72. DEXTROMETHORPHAN HYDROBROMIDE. [Concomitant]
     Active Substance: DEXTROMETHORPHAN HYDROBROMIDE
     Dates: start: 20170807, end: 20170810
  73. GLYCYRRHIZA [Concomitant]
     Active Substance: LICORICE
     Dates: start: 20170410, end: 20170430
  74. TRASTUZUMAB. [Suspect]
     Active Substance: TRASTUZUMAB
     Dosage: MAINTENANCE DOSE.?DATE OF LAST DOSE OF TRASTUZUMAB AT 342 MG ON 09/MAR/2017.
     Route: 042
     Dates: start: 20170216
  75. DOCETAXEL. [Suspect]
     Active Substance: DOCETAXEL
     Indication: BREAST CANCER METASTATIC
     Dosage: 75 MG/M2 (AS PER PROTOCOL) ONCE IN 3 WEEKS (CYCLES 1-4 PER PROTOCOL).?DATE OF LAST DOSE OF DOCETAXEL
     Route: 042
     Dates: start: 20170126
  76. POTASSIUM CHLORIDE. [Concomitant]
     Active Substance: POTASSIUM CHLORIDE
     Dates: start: 20170418, end: 20170419
  77. DOXOFYLLINE [Concomitant]
     Active Substance: DOXOFYLLINE
     Indication: COUGH
     Dates: start: 20170418, end: 20170422
  78. DOXOFYLLINE [Concomitant]
     Active Substance: DOXOFYLLINE
     Indication: ASTHMA
  79. LEVOFLOXACIN MESYLATE [Concomitant]
     Active Substance: LEVOFLOXACIN MESYLATE
     Dates: start: 20170612, end: 20170617
  80. FLUCONAZOLE. [Concomitant]
     Active Substance: FLUCONAZOLE
     Indication: COUGH
     Dates: start: 20170503, end: 20170515
  81. RANITIDINE HYDROCHLORIDE. [Concomitant]
     Active Substance: RANITIDINE HYDROCHLORIDE
     Dates: start: 20170509, end: 20170515
  82. DIAMMONIUM GLYCYRRHIZINATE [Concomitant]
     Active Substance: HERBALS\DIAMMONIUM GLYCYRRHIZINATE
     Dates: start: 20170602, end: 20170609
  83. CEFOXITIN SODIUM [Concomitant]
     Active Substance: CEFOXITIN SODIUM
     Dates: start: 20170610, end: 20170617

REACTIONS (1)
  - Pneumonia [Recovered/Resolved]

NARRATIVE: CASE EVENT DATE: 20170310
